FAERS Safety Report 9293950 (Version 1)
Quarter: 2013Q1

REPORT INFORMATION
  Report Type: Spontaneous
  Country: US (occurrence: None)
  Receive Date: 20121214
  Receipt Date: 20121214
  Transmission Date: 20140127
  Serious: Yes (Hospitalization)
  Sender: FDA-Public Use
  Company Number: 1208USA000040

PATIENT
  Age: 48 Year
  Sex: Female

DRUGS (6)
  1. JANUVIA (SITAGLIPTIN PHOSPHATE)FILM-COATED TABLET, 100MG [Suspect]
     Indication: DIABETES MELLITUS
     Route: 048
  2. LANTUS (INSULIN GLARGINE) [Concomitant]
  3. NOVOLOG (INSULIN ASPART) [Concomitant]
  4. GLIMEPIRIDE [Concomitant]
  5. METFORMIN (METFORMIN) [Concomitant]
  6. RAMIPRIL (RAMIPRIL) [Concomitant]

REACTIONS (1)
  - Pancreatitis acute [None]
